FAERS Safety Report 26093573 (Version 1)
Quarter: 2025Q4

REPORT INFORMATION
  Report Type: Spontaneous
  Country: US (occurrence: US)
  Receive Date: 20251126
  Receipt Date: 20251126
  Transmission Date: 20260118
  Serious: No
  Sender: Kenvue
  Company Number: US-KENVUE-20251103123

PATIENT
  Sex: Female
  Weight: 74.389 kg

DRUGS (13)
  1. TYLENOL [Suspect]
     Active Substance: ACETAMINOPHEN
     Indication: Headache
     Dosage: UNK
     Route: 065
  2. TYLENOL [Suspect]
     Active Substance: ACETAMINOPHEN
     Indication: Illness
  3. TYLENOL [Suspect]
     Active Substance: ACETAMINOPHEN
     Indication: Vomiting
  4. TYLENOL [Suspect]
     Active Substance: ACETAMINOPHEN
     Indication: Hyperhidrosis
  5. TYLENOL [Suspect]
     Active Substance: ACETAMINOPHEN
     Indication: Chills
  6. TYLENOL [Suspect]
     Active Substance: ACETAMINOPHEN
     Indication: Cold sweat
  7. TYLENOL [Suspect]
     Active Substance: ACETAMINOPHEN
     Indication: Diarrhoea
  8. UPTRAVI [Concomitant]
     Active Substance: SELEXIPAG
     Indication: Pulmonary arterial hypertension
     Dosage: 1400 MICROGRAM IN AM, 1600 MICROGRAM IN PM, TWICE A DAY
  9. SILDENAFIL [Concomitant]
     Active Substance: SILDENAFIL
     Indication: Product used for unknown indication
     Dosage: UNK
     Route: 065
  10. AMBRISENTAN [Concomitant]
     Active Substance: AMBRISENTAN
     Indication: Product used for unknown indication
     Route: 065
  11. REVATIO [Concomitant]
     Active Substance: SILDENAFIL CITRATE
     Indication: Product used for unknown indication
     Route: 065
  12. AMOXICILLIN [Concomitant]
     Active Substance: AMOXICILLIN
     Indication: Influenza like illness
     Dosage: UNK
     Route: 065
  13. AMOXICILLIN [Concomitant]
     Active Substance: AMOXICILLIN
     Indication: Nasopharyngitis

REACTIONS (2)
  - Drug ineffective [Unknown]
  - Product use in unapproved indication [Unknown]

NARRATIVE: CASE EVENT DATE: 20250101
